FAERS Safety Report 7099623-3 (Version None)
Quarter: 2010Q4

REPORT INFORMATION
  Report Type: 
  Country: None (occurrence: None)
  Receive Date: 20101112
  Receipt Date: 20101108
  Transmission Date: 20110411
  Serious: Yes (Death)
  Sender: FDA-Public Use
  Company Number: JP-EISAI INC.-E2090-01344-SPO-JP

PATIENT
  Sex: Male

DRUGS (7)
  1. EXCEGRAN [Suspect]
     Indication: POSTOPERATIVE CARE
     Route: 048
     Dates: start: 20100830, end: 20100930
  2. EXCEGRAN [Suspect]
     Indication: CEREBRAL INFARCTION
  3. MEPTIN AIR [Concomitant]
     Dates: end: 20100930
  4. LENDORMIN [Concomitant]
     Dates: end: 20100930
  5. SINGULAIR [Concomitant]
     Dates: end: 20101002
  6. TOLOBUTEROL [Concomitant]
     Dates: end: 20101002
  7. OLMETEC [Concomitant]
     Dates: end: 20101003

REACTIONS (1)
  - DRUG RASH WITH EOSINOPHILIA AND SYSTEMIC SYMPTOMS [None]
